FAERS Safety Report 25367913 (Version 1)
Quarter: 2025Q2

REPORT INFORMATION
  Report Type: Report from Study
  Country: AE (occurrence: AE)
  Receive Date: 20250528
  Receipt Date: 20250528
  Transmission Date: 20250716
  Serious: Yes (Hospitalization)
  Sender: ROCHE
  Company Number: AE-ROCHE-10000288427

PATIENT
  Age: 46 Year
  Sex: Female

DRUGS (1)
  1. PHESGO [Suspect]
     Active Substance: HYALURONIDASE-ZZXF\PERTUZUMAB\TRASTUZUMAB
     Indication: Product used for unknown indication
     Route: 065

REACTIONS (12)
  - Dyspnoea [Unknown]
  - Anaemia [Unknown]
  - Thrombocytopenia [Unknown]
  - Coagulopathy [Unknown]
  - Activated partial thromboplastin time prolonged [Unknown]
  - C-reactive protein increased [Unknown]
  - Procalcitonin increased [Unknown]
  - Blood fibrinogen decreased [Unknown]
  - Prothrombin time prolonged [Unknown]
  - Fibrin D dimer increased [Unknown]
  - Sepsis [Unknown]
  - Disseminated intravascular coagulation [Unknown]
